FAERS Safety Report 9791938 (Version 1)
Quarter: 2014Q1

REPORT INFORMATION
  Report Type: Spontaneous
  Country: US (occurrence: US)
  Receive Date: 20140102
  Receipt Date: 20140102
  Transmission Date: 20141002
  Serious: Yes (Hospitalization)
  Sender: FDA-Public Use
  Company Number: US-PFIZER INC-2013374515

PATIENT
  Age: 57 Year
  Sex: Male
  Weight: 81.63 kg

DRUGS (5)
  1. NEURONTIN [Suspect]
     Indication: NERVE INJURY
     Dosage: 300 MG, 2X/DAY
     Dates: start: 2013, end: 2013
  2. NEURONTIN [Suspect]
     Dosage: 600 MG, 2X/DAY
     Dates: start: 201312
  3. ASPIRIN [Concomitant]
     Dosage: UNK, 1X/DAY
  4. LISINOPRIL W/HYDROCHLOROTHIAZIDE [Concomitant]
     Indication: HYPERTENSION
     Dosage: LISINOPRIL 20/ HYDROCHLOROTHIAZIDE 12.5 MG
  5. HYDROCODONE [Concomitant]
     Indication: PAIN
     Dosage: UNK

REACTIONS (5)
  - Pneumonia [Unknown]
  - Renal failure [Unknown]
  - Dehydration [Unknown]
  - Hypotension [Unknown]
  - Drug ineffective [Unknown]
